FAERS Safety Report 24061200 (Version 1)
Quarter: 2024Q3

REPORT INFORMATION
  Report Type: Spontaneous
  Country: US (occurrence: US)
  Receive Date: 20240708
  Receipt Date: 20240708
  Transmission Date: 20241017
  Serious: No
  Sender: SANOFI AVENTIS
  Company Number: US-SA-SAC20240702000770

PATIENT
  Age: 75 Year
  Sex: Female
  Weight: 66.22 kg

DRUGS (21)
  1. DUPIXENT [Suspect]
     Active Substance: DUPILUMAB
     Indication: Illness
     Dosage: 300 MG, QOW
     Route: 058
  2. CETIRIZINE HCL [Concomitant]
     Active Substance: CETIRIZINE HYDROCHLORIDE
  3. OMEPRAZOLE [Concomitant]
     Active Substance: OMEPRAZOLE
  4. TERBINAFINE HYDROCHLORIDE [Concomitant]
     Active Substance: TERBINAFINE HYDROCHLORIDE
  5. CHIA SEED [Concomitant]
  6. HERBALS\PLANTAGO INDICA WHOLE [Concomitant]
     Active Substance: HERBALS\PLANTAGO INDICA WHOLE
  7. VITAMIN C [Concomitant]
     Active Substance: ASCORBIC ACID
  8. ECHINACEA [ECHINACEA PURPUREA] [Concomitant]
  9. FLUTICASONE PROPIONATE [Concomitant]
     Active Substance: FLUTICASONE PROPIONATE
  10. SYSTANE (HYPROMELLOSE 2910 (4000 MPA.S)) [Concomitant]
     Active Substance: HYPROMELLOSE 2910 (4000 MPA.S)
  11. COLACE [Concomitant]
     Active Substance: DOCUSATE SODIUM
  12. MELATONIN [Concomitant]
     Active Substance: MELATONIN
  13. ASCORBIC ACID\VITAMIN B COMPLEX [Concomitant]
     Active Substance: ASCORBIC ACID\VITAMIN B COMPLEX
  14. MAGNESIUM [Concomitant]
     Active Substance: MAGNESIUM
  15. BIOTIN [Concomitant]
     Active Substance: BIOTIN
  16. VITAMIN B12 [Concomitant]
     Active Substance: CYANOCOBALAMIN
  17. LOVASTATIN [Concomitant]
     Active Substance: LOVASTATIN
  18. MONTELUKAST SODIUM [Concomitant]
     Active Substance: MONTELUKAST SODIUM
  19. VITAMIN D3 [Concomitant]
     Active Substance: CHOLECALCIFEROL
  20. GEMTESA [Concomitant]
     Active Substance: VIBEGRON
  21. BUPROPION [Concomitant]
     Active Substance: BUPROPION
     Dosage: UNK UNK, QD

REACTIONS (4)
  - Tinea pedis [Unknown]
  - Rash pruritic [Unknown]
  - Skin swelling [Unknown]
  - Rash [Unknown]

NARRATIVE: CASE EVENT DATE: 20240101
